FAERS Safety Report 4356433-5 (Version None)
Quarter: 2004Q2

REPORT INFORMATION
  Report Type: 
  Country: None (occurrence: None)
  Receive Date: 20040507
  Receipt Date: 20040429
  Transmission Date: 20050107
  Serious: Yes (Death)
  Sender: FDA-Public Use
  Company Number: 2004UW08216

PATIENT
  Age: 54 Year
  Sex: Female

DRUGS (10)
  1. XYLOCAINE [Suspect]
     Indication: PLASTIC SURGERY TO THE FACE
     Dosage: 20 MG/KG SQ
  2. XYLOCAINE [Suspect]
     Indication: PLASTIC SURGERY TO THE FACE
     Dosage: 300 MG ONCE IV
     Route: 042
  3. DIPRIVAN [Suspect]
     Indication: PLASTIC SURGERY TO THE FACE
  4. VALIUM [Suspect]
     Indication: PLASTIC SURGERY TO THE FACE
     Dosage: 5 UG/KG
  5. FENTANYL [Suspect]
     Indication: PLASTIC SURGERY TO THE FACE
     Dosage: 75 UG ONCE
  6. VERSED [Suspect]
     Indication: PLASTIC SURGERY TO THE FACE
     Dosage: 2 MG
  7. ATIVAN [Concomitant]
  8. ASPIRIN [Concomitant]
  9. FOSAMAX [Concomitant]
  10. PRILOSEC [Concomitant]

REACTIONS (4)
  - ANAESTHETIC COMPLICATION [None]
  - CARDIAC ARREST [None]
  - MEDICATION ERROR [None]
  - SUPRAVENTRICULAR TACHYCARDIA [None]
